FAERS Safety Report 21352081 (Version 3)
Quarter: 2022Q4

REPORT INFORMATION
  Report Type: Report from Study
  Country: US (occurrence: US)
  Receive Date: 20220920
  Receipt Date: 20221117
  Transmission Date: 20230113
  Serious: Yes (Hospitalization)
  Sender: FDA-Public Use
  Company Number: US-BEH-2022149579

PATIENT
  Age: 34 Year
  Sex: Female
  Weight: 174 kg

DRUGS (3)
  1. BERINERT [Suspect]
     Active Substance: HUMAN C1-ESTERASE INHIBITOR
     Indication: Hereditary angioedema
     Dosage: 7000 INTERNATIONAL UNIT, BIW
     Route: 058
  2. BERINERT [Suspect]
     Active Substance: HUMAN C1-ESTERASE INHIBITOR
     Indication: Prophylaxis
     Dosage: 7000 INTERNATIONAL UNIT/KILOGRAM
     Route: 058
  3. BERINERT [Suspect]
     Active Substance: HUMAN C1-ESTERASE INHIBITOR
     Dosage: 7000 INTERNATIONAL UNIT/KILOGRAM, BIW
     Route: 058

REACTIONS (12)
  - Road traffic accident [Recovering/Resolving]
  - Insurance issue [Unknown]
  - Neck injury [Recovering/Resolving]
  - Back injury [Recovering/Resolving]
  - Dysstasia [Recovering/Resolving]
  - Sitting disability [Recovering/Resolving]
  - No adverse event [Unknown]
  - Loss of employment [Unknown]
  - Product use issue [Unknown]
  - Spinal disorder [Unknown]
  - No adverse event [Not Recovered/Not Resolved]
  - Product use issue [Not Recovered/Not Resolved]

NARRATIVE: CASE EVENT DATE: 20221006
